FAERS Safety Report 5115355-2 (Version None)
Quarter: 2006Q3

REPORT INFORMATION
  Report Type: 
  Country: None (occurrence: None)
  Receive Date: 20060922
  Receipt Date: 20060911
  Transmission Date: 20061208
  Serious: Yes (Other)
  Sender: FDA-Public Use
  Company Number: 2006105742

PATIENT
  Sex: Male

DRUGS (3)
  1. MEDROL [Suspect]
     Indication: ARTHRALGIA
     Dosage: 16 MG (8 MG,2 IN 1 D), ORAL
     Route: 048
     Dates: start: 20060809, end: 20060812
  2. MAGNEX (SULBACTAM, CEFOPERAZONE) [Suspect]
     Indication: PYREXIA
     Dosage: 2 GRAM (1 GRAM, 2 IN 1 D), INTRAVENOUS
     Route: 042
     Dates: start: 20060801
  3. GEFARNATE (GEFARNATE) [Concomitant]

REACTIONS (3)
  - DIABETES MELLITUS [None]
  - RASH [None]
  - THERAPY NON-RESPONDER [None]
